FAERS Safety Report 7379227-5 (Version None)
Quarter: 2011Q1

REPORT INFORMATION
  Report Type: 
  Country: None (occurrence: None)
  Receive Date: 20110328
  Receipt Date: 20110321
  Transmission Date: 20110831
  Serious: Yes (Other)
  Sender: FDA-Public Use
  Company Number: US-RB-024324-11

PATIENT
  Age: 43 Year
  Sex: Male

DRUGS (4)
  1. SUBOXONE [Suspect]
     Dosage: SUBLINGUAL FILM
     Route: 060
     Dates: start: 20110318
  2. SUBOXONE [Suspect]
     Dosage: SUBLINGUAL FILM
     Route: 060
     Dates: start: 20110314, end: 20110317
  3. DOXEPIN [Suspect]
     Indication: PRODUCT USED FOR UNKNOWN INDICATION
     Dosage: UNKNOWN DOSING INFORMATION
     Route: 065
  4. SUBOXONE [Suspect]
     Indication: DRUG DEPENDENCE
     Dosage: SUBLINGUAL FILM- 8 TO 16 MILLIGRAMS DAILY
     Route: 060
     Dates: start: 20110101, end: 20110313

REACTIONS (12)
  - PARAESTHESIA [None]
  - NAUSEA [None]
  - DRUG WITHDRAWAL SYNDROME [None]
  - OVERDOSE [None]
  - ANXIETY [None]
  - AGORAPHOBIA [None]
  - DEHYDRATION [None]
  - LETHARGY [None]
  - MALAISE [None]
  - SUICIDAL IDEATION [None]
  - INSOMNIA [None]
  - DEPRESSION [None]
